FAERS Safety Report 4680848-9 (Version None)
Quarter: 2005Q2

REPORT INFORMATION
  Report Type: 
  Country: None (occurrence: None)
  Receive Date: 20050603
  Receipt Date: 20050222
  Transmission Date: 20051028
  Serious: Yes (Hospitalization)
  Sender: FDA-Public Use
  Company Number: FR-BRISTOL-MYERS SQUIBB COMPANY-12896569

PATIENT
  Age: 14 Year
  Sex: Female
  Weight: 45 kg

DRUGS (5)
  1. SUSTIVA [Suspect]
     Route: 048
     Dates: start: 20050217
  2. RIFATER [Concomitant]
     Indication: TUBERCULOSIS
     Dates: start: 20050502
  3. VIRAMUNE [Concomitant]
  4. EPIVIR [Concomitant]
  5. VIDEX [Concomitant]

REACTIONS (2)
  - HERPES SIMPLEX [None]
  - PYREXIA [None]
